FAERS Safety Report 9095475 (Version 2)
Quarter: 2014Q3

REPORT INFORMATION
  Report Type: Spontaneous
  Country: US (occurrence: None)
  Receive Date: 20130124
  Receipt Date: 20140801
  Transmission Date: 20150326
  Serious: Yes (Hospitalization, Other)
  Sender: FDA-Public Use
  Company Number: 2012-001845

PATIENT
  Age: 58 Year
  Sex: Male

DRUGS (31)
  1. ACTONEL [Suspect]
     Active Substance: RISEDRONATE SODIUM
     Indication: OSTEOPOROSIS
     Route: 048
     Dates: start: 200501, end: 2009
  2. FOSAMAX [Suspect]
     Active Substance: ALENDRONATE SODIUM
     Indication: OSTEOPENIA
  3. ASPIRIN (ACETYLSALICYLIC ACID) [Concomitant]
     Active Substance: ASPIRIN
  4. PREVACID [Concomitant]
     Active Substance: LANSOPRAZOLE
  5. VITAMIN D  (COLECALCIFEROL) [Concomitant]
  6. ACTONEL [Suspect]
     Active Substance: RISEDRONATE SODIUM
     Indication: OSTEOPENIA
     Route: 048
     Dates: start: 200501, end: 2009
  7. FOSAMAX [Suspect]
     Active Substance: ALENDRONATE SODIUM
     Indication: OSTEOPOROSIS
  8. ALTACE (RAMIPRIL) [Concomitant]
  9. ZOCOR [Concomitant]
     Active Substance: SIMVASTATIN
  10. AMBIEN (ZOLPIDEM TARTRATE) [Concomitant]
  11. KETOCONAZOLE (KETOCONAZOLE) [Concomitant]
     Active Substance: KETOCONAZOLE
  12. ALLEGRA [Concomitant]
     Active Substance: FEXOFENADINE HYDROCHLORIDE
  13. FLONASE (FLUTICASONE PROPIONATE) [Concomitant]
  14. ENBREL (ETANERCEPT) [Concomitant]
  15. COUMADIN [Concomitant]
     Active Substance: WARFARIN SODIUM
  16. BETAPACE (SOTALOL HYDROCHLORIDE) [Concomitant]
  17. K-DUR (POTASSIUM CHLORIDE) [Concomitant]
  18. AMOXICILLIN AND CLAVULANATE POTASSIUM (AMOXICILLIN TRIHYDRATE, CLAVULANATE POTASSIUM) [Concomitant]
  19. FOLIC ACID (FOLIC ACID) [Concomitant]
  20. PLAVIX (CLOPIDOGREL BISULFATE) [Concomitant]
  21. CALCIUM (CALCIUM) [Concomitant]
  22. METHOTREXATE (METHOTREXATE) [Concomitant]
     Active Substance: METHOTREXATE
  23. MEXILETINE (MEXILETINE) [Concomitant]
  24. COREG [Concomitant]
     Active Substance: CARVEDILOL
  25. VYTORIN (EZETIMIBE, SIMVASTATIN) [Concomitant]
  26. IBUPROFEN (IBUPROFEN) [Concomitant]
     Active Substance: IBUPROFEN
  27. AMOXICILLIN (AMOXICILLIN) [Concomitant]
     Active Substance: AMOXICILLIN
  28. PREDNISONE (PREDNISONE) [Concomitant]
     Active Substance: PREDNISONE
  29. ZETIA (EZETIMIBE) [Concomitant]
  30. LASIX [Concomitant]
     Active Substance: FUROSEMIDE
  31. PROTONIX (PANTOPRAZOLE SODIUM SESQUIHYDRATE) [Concomitant]

REACTIONS (11)
  - Pain [None]
  - Fracture displacement [None]
  - Fall [None]
  - Osteogenesis imperfecta [None]
  - Low turnover osteopathy [None]
  - Bone callus excessive [None]
  - Stress fracture [None]
  - Pain in extremity [None]
  - Pathological fracture [None]
  - Bone disorder [None]
  - Femur fracture [None]

NARRATIVE: CASE EVENT DATE: 20091110
